FAERS Safety Report 25722012 (Version 1)
Quarter: 2025Q3

REPORT INFORMATION
  Report Type: Spontaneous
  Country: US (occurrence: None)
  Receive Date: 20250823
  Receipt Date: 20250823
  Transmission Date: 20251021
  Serious: Yes (Hospitalization)
  Sender: FDA-CTU
  Company Number: None

PATIENT
  Age: 78 Year
  Sex: Male
  Weight: 82 kg

DRUGS (2)
  1. TAXOTERE [Suspect]
     Active Substance: DOCETAXEL
     Dates: start: 20240708, end: 20250721
  2. GEMCITABINE HYDROCHLORIDE [Suspect]
     Active Substance: GEMCITABINE HYDROCHLORIDE

REACTIONS (5)
  - Abdominal pain [None]
  - Nausea [None]
  - Vomiting [None]
  - Enteritis [None]
  - Small intestinal obstruction [None]

NARRATIVE: CASE EVENT DATE: 20250731
